FAERS Safety Report 19246014 (Version 1)
Quarter: 2021Q2

REPORT INFORMATION
  Report Type: Spontaneous
  Country: US (occurrence: US)
  Receive Date: 20210511
  Receipt Date: 20210511
  Transmission Date: 20210717
  Serious: No
  Sender: FDA-Public Use
  Company Number: None

PATIENT
  Sex: Female

DRUGS (19)
  1. AMBRISENTAN 5MG TAB [Suspect]
     Active Substance: AMBRISENTAN
     Indication: PULMONARY HYPERTENSION
     Route: 048
  2. COPAXONE [Concomitant]
     Active Substance: GLATIRAMER ACETATE
  3. LEVOTHYROXINE SODIUM. [Concomitant]
     Active Substance: LEVOTHYROXINE SODIUM
  4. LASIX [Concomitant]
     Active Substance: FUROSEMIDE
  5. BACLOFEN. [Concomitant]
     Active Substance: BACLOFEN
  6. AMBIEN [Concomitant]
     Active Substance: ZOLPIDEM TARTRATE
  7. PLAVIX [Concomitant]
     Active Substance: CLOPIDOGREL BISULFATE
  8. BABY ASPIRIN [Concomitant]
     Active Substance: ASPIRIN
  9. TADALAFIL 20MG [Suspect]
     Active Substance: TADALAFIL
  10. AMARYL [Concomitant]
     Active Substance: GLIMEPIRIDE
  11. ALLOPURINOL. [Concomitant]
     Active Substance: ALLOPURINOL
  12. VITAMIN D [Concomitant]
     Active Substance: VITAMIN D NOS
  13. AMLODIPINE BESYLATE. [Concomitant]
     Active Substance: AMLODIPINE BESYLATE
  14. TADALAFIL. [Concomitant]
     Active Substance: TADALAFIL
  15. PROTONIX [Concomitant]
     Active Substance: PANTOPRAZOLE SODIUM
  16. NOVOLIN 70/30 [Concomitant]
     Active Substance: INSULIN HUMAN
  17. VALIUM [Concomitant]
     Active Substance: DIAZEPAM
  18. TRAMADOL HCL [Concomitant]
     Active Substance: TRAMADOL HYDROCHLORIDE
  19. FOLIC ACID. [Concomitant]
     Active Substance: FOLIC ACID

REACTIONS (1)
  - Nasal congestion [None]
